FAERS Safety Report 24250215 (Version 1)
Quarter: 2024Q3

REPORT INFORMATION
  Report Type: Spontaneous
  Country: US (occurrence: None)
  Receive Date: 20240824
  Receipt Date: 20240824
  Transmission Date: 20241016
  Serious: Yes (Death, Hospitalization)
  Sender: Public
  Company Number: None

PATIENT
  Age: 66 Year
  Sex: Female

DRUGS (1)
  1. CAPECITABINE [Suspect]
     Active Substance: CAPECITABINE
     Indication: Breast cancer metastatic
     Dosage: FREQUENCY : TWICE A DAY;?
     Route: 048
     Dates: start: 20240517, end: 20240528

REACTIONS (12)
  - Adverse drug reaction [None]
  - Therapy interrupted [None]
  - Diarrhoea [None]
  - Malnutrition [None]
  - Dehydration [None]
  - Vomiting [None]
  - Mucosal inflammation [None]
  - Cognitive disorder [None]
  - Dihydropyrimidine dehydrogenase deficiency [None]
  - Toxicity to various agents [None]
  - Overdose [None]
  - Drug level increased [None]

NARRATIVE: CASE EVENT DATE: 20240529
